FAERS Safety Report 11771963 (Version 1)
Quarter: 2015Q4

REPORT INFORMATION
  Report Type: Report from Study
  Country: BR (occurrence: BR)
  Receive Date: 20151124
  Receipt Date: 20151124
  Transmission Date: 20160304
  Serious: Yes (Other)
  Sender: FDA-Public Use
  Company Number: PHHY2015BR151679

PATIENT
  Sex: Male
  Weight: 58 kg

DRUGS (1)
  1. EXJADE [Suspect]
     Active Substance: DEFERASIROX
     Indication: THALASSAEMIA
     Dosage: 1 DF OF 500 MG, FASTING, UNK
     Route: 048
     Dates: start: 2013, end: 2014

REACTIONS (2)
  - Renal failure [Unknown]
  - Ureteric cancer [Unknown]
